FAERS Safety Report 14154600 (Version 4)
Quarter: 2018Q2

REPORT INFORMATION
  Report Type: Report from Study
  Country: JP (occurrence: JP)
  Receive Date: 20171102
  Receipt Date: 20180406
  Transmission Date: 20180711
  Serious: Yes (Death, Hospitalization)
  Sender: FDA-Public Use
  Company Number: JP-B.I. PHARMACEUTICALS,INC./RIDGEFIELD-2016-BI-47510NB

PATIENT
  Age: 69 Year
  Sex: Male
  Weight: 49.3 kg

DRUGS (3)
  1. MEDICON [Concomitant]
     Active Substance: DEXTROMETHORPHAN HYDROBROMIDE
     Indication: IDIOPATHIC PULMONARY FIBROSIS
     Route: 065
     Dates: start: 20160524, end: 20171029
  2. BIBF 1120 [Suspect]
     Active Substance: NINTEDANIB
     Indication: IDIOPATHIC PULMONARY FIBROSIS
     Route: 048
     Dates: start: 20160304, end: 20171029
  3. TENELIA [Concomitant]
     Active Substance: TENELIGLIPTIN
     Indication: PRODUCT USED FOR UNKNOWN INDICATION
     Route: 065
     Dates: end: 20171029

REACTIONS (13)
  - Pneumonia bacterial [Recovered/Resolved]
  - Upper respiratory tract inflammation [Recovered/Resolved]
  - Pneumonia bacterial [Recovered/Resolved]
  - Decreased appetite [Recovered/Resolved]
  - Benign prostatic hyperplasia [Recovered/Resolved]
  - Respiratory failure [Fatal]
  - Pneumonia bacterial [Fatal]
  - Diarrhoea [Recovered/Resolved]
  - Diarrhoea [Recovered/Resolved]
  - Diarrhoea [Recovered/Resolved]
  - Neurogenic bladder [Recovered/Resolved]
  - Stupor [Recovered/Resolved]
  - Diarrhoea [Recovered/Resolved]

NARRATIVE: CASE EVENT DATE: 20160420
